FAERS Safety Report 6303502-6 (Version None)
Quarter: 2009Q3

REPORT INFORMATION
  Report Type: 
  Country: None (occurrence: None)
  Receive Date: 20090810
  Receipt Date: 20090731
  Transmission Date: 20100115
  Serious: Yes (Hospitalization, Other)
  Sender: FDA-Public Use
  Company Number: BR-ABBOTT-09P-020-0502607-00

PATIENT
  Sex: Female
  Weight: 74 kg

DRUGS (11)
  1. HUMIRA [Suspect]
     Indication: RHEUMATOID ARTHRITIS
     Route: 058
     Dates: start: 20080101, end: 20090128
  2. ARAVA [Concomitant]
     Indication: DRUG USE FOR UNKNOWN INDICATION
     Route: 048
     Dates: start: 20030101
  3. PARACETAMOL [Concomitant]
     Indication: DRUG USE FOR UNKNOWN INDICATION
  4. DEFLAZACORT [Concomitant]
     Indication: DRUG USE FOR UNKNOWN INDICATION
  5. TRAMADOL [Concomitant]
     Indication: DRUG USE FOR UNKNOWN INDICATION
  6. CHLOROQUINE [Concomitant]
     Indication: DRUG USE FOR UNKNOWN INDICATION
  7. CYCLOBENZAPRINE HCL [Concomitant]
     Indication: DRUG USE FOR UNKNOWN INDICATION
  8. DIOVAN [Concomitant]
     Indication: HYPERTENSION
     Dosage: 1/2 - 80 MILLIGRAMS TABLET DAILY
     Route: 048
     Dates: start: 20081101
  9. DIURISA [Concomitant]
     Indication: HYPERTENSION
     Dosage: 1/2 - 40 MILLIGRAM TABLET DAILY
     Route: 048
     Dates: start: 20081101
  10. GLICAMIN [Concomitant]
     Indication: DIABETES MELLITUS
     Route: 048
  11. MAGISTRAL FORMULA [Concomitant]
     Indication: RHEUMATOID ARTHRITIS
     Dosage: FORM: 12/750/600/20/125/7 MILLIGRAMS
     Route: 048

REACTIONS (16)
  - ABASIA [None]
  - ARTHROPATHY [None]
  - ASTHENIA [None]
  - BLOOD BLISTER [None]
  - BONE FISSURE [None]
  - CONDITION AGGRAVATED [None]
  - CYST [None]
  - FALL [None]
  - GASTRIC ULCER [None]
  - LOWER LIMB FRACTURE [None]
  - OSTEOARTHRITIS [None]
  - SURGICAL PROCEDURE REPEATED [None]
  - SUTURE RELATED COMPLICATION [None]
  - SWELLING [None]
  - VISUAL IMPAIRMENT [None]
  - WOUND [None]
